FAERS Safety Report 10010019 (Version 2)
Quarter: 2014Q1

REPORT INFORMATION
  Report Type: Spontaneous
  Country: US (occurrence: US)
  Receive Date: 20140312
  Receipt Date: 20140312
  Transmission Date: 20141002
  Serious: Yes (Other)
  Sender: FDA-Public Use
  Company Number: US-INCYTE CORPORATION-2013IN000525

PATIENT
  Sex: Female

DRUGS (2)
  1. JAKAFI [Suspect]
     Indication: MYELOFIBROSIS
     Dosage: 10 MG, QD
     Route: 048
     Dates: start: 20130118, end: 2013
  2. JAKAFI [Suspect]
     Dosage: NOT SPECIFIED (DECREASED DOSAGE)
     Route: 048
     Dates: start: 2013

REACTIONS (2)
  - Blood count abnormal [Unknown]
  - Anaemia [Unknown]
